FAERS Safety Report 6600092-5 (Version None)
Quarter: 2010Q1

REPORT INFORMATION
  Report Type: 
  Country: None (occurrence: None)
  Receive Date: 20100224
  Receipt Date: 20100218
  Transmission Date: 20100710
  Serious: Yes (Other)
  Sender: FDA-Public Use
  Company Number: PHEH2009US16225

PATIENT
  Sex: Female

DRUGS (1)
  1. FEMARA [Suspect]
     Indication: BREAST CANCER FEMALE
     Dosage: 2.5 MG, QD
     Route: 048
     Dates: start: 20060701

REACTIONS (6)
  - ATRIOVENTRICULAR BLOCK [None]
  - CARDIAC VALVE DISEASE [None]
  - CATHETERISATION CARDIAC [None]
  - HIP FRACTURE [None]
  - INTERNAL FIXATION OF FRACTURE [None]
  - PAIN [None]
